FAERS Safety Report 13662603 (Version 1)
Quarter: 2017Q2

REPORT INFORMATION
  Report Type: Spontaneous
  Country: US (occurrence: US)
  Receive Date: 20170618
  Receipt Date: 20170618
  Transmission Date: 20170830
  Serious: No
  Sender: FDA-Public Use
  Company Number: US-TEVA-777197ACC

PATIENT
  Age: 52 Year
  Sex: Female

DRUGS (13)
  1. VALSARTAN/HYDROCHLOROTHIAZIDE [Concomitant]
     Active Substance: HYDROCHLOROTHIAZIDE\VALSARTAN
  2. DULOXETINE. [Concomitant]
     Active Substance: DULOXETINE
  3. HYDROXYZINE [Concomitant]
     Active Substance: HYDROXYZINE HYDROCHLORIDE
  4. BACLOFEN. [Concomitant]
     Active Substance: BACLOFEN
  5. TOPIRAMATE. [Concomitant]
     Active Substance: TOPIRAMATE
  6. COPAXONE [Suspect]
     Active Substance: GLATIRAMER ACETATE
     Indication: MULTIPLE SCLEROSIS
     Dosage: PRE FILLED SYRINGE
     Route: 058
     Dates: start: 20170315
  7. ESTRADIOL. [Concomitant]
     Active Substance: ESTRADIOL
  8. METOPROLOL. [Concomitant]
     Active Substance: METOPROLOL
  9. NORTRIPTYLINE [Concomitant]
     Active Substance: NORTRIPTYLINE
  10. BUPROPION. [Concomitant]
     Active Substance: BUPROPION
  11. FUROSEMIDE. [Concomitant]
     Active Substance: FUROSEMIDE
  12. LEVOTHYROXINE. [Concomitant]
     Active Substance: LEVOTHYROXINE
  13. HYDROCODONE BITARTRATE AND ACETAMINOPHEN [Concomitant]
     Active Substance: ACETAMINOPHEN\HYDROCODONE BITARTRATE

REACTIONS (1)
  - Fall [Unknown]

NARRATIVE: CASE EVENT DATE: 201705
